FAERS Safety Report 7983217-9 (Version None)
Quarter: 2011Q4

REPORT INFORMATION
  Report Type: 
  Country: None (occurrence: None)
  Receive Date: 20111215
  Receipt Date: 20111206
  Transmission Date: 20120403
  Serious: Yes (Hospitalization)
  Sender: FDA-Public Use
  Company Number: BE-ASTRAZENECA-2011SE61216

PATIENT
  Age: 13858 Day
  Sex: Male
  Weight: 100 kg

DRUGS (4)
  1. MIDAZOLAM [Concomitant]
     Indication: SEDATIVE THERAPY
     Dosage: 8 MG/U
     Route: 042
     Dates: start: 20110418, end: 20110521
  2. DIPRIVAN [Suspect]
     Dosage: 20 ML/U
     Route: 041
     Dates: start: 20110418, end: 20110515
  3. CATAPRES [Concomitant]
     Indication: SEDATIVE THERAPY
     Dosage: 900 ?G/24U
     Route: 042
     Dates: start: 20110419, end: 20110521
  4. DIPITRAMIDE [Concomitant]
     Indication: SEDATIVE THERAPY
     Dosage: 8 MG/U
     Route: 042
     Dates: start: 20110418, end: 20110521

REACTIONS (2)
  - RENAL FAILURE ACUTE [None]
  - RHABDOMYOLYSIS [None]
